FAERS Safety Report 11511352 (Version 2)
Quarter: 2015Q3

REPORT INFORMATION
  Report Type: Spontaneous
  Country: US (occurrence: US)
  Receive Date: 20150915
  Receipt Date: 20150921
  Transmission Date: 20151125
  Serious: Yes (Other)
  Sender: FDA-Public Use
  Company Number: US-PFIZER INC-2015308079

PATIENT
  Age: 60 Year
  Sex: Male

DRUGS (2)
  1. REVATIO [Suspect]
     Active Substance: SILDENAFIL CITRATE
     Indication: ERECTILE DYSFUNCTION
     Dosage: 20 MG, 2X/DAY
     Dates: start: 2015, end: 2015
  2. REVATIO [Suspect]
     Active Substance: SILDENAFIL CITRATE
     Indication: VASCULAR INSUFFICIENCY

REACTIONS (3)
  - Hypoacusis [Unknown]
  - Off label use [Unknown]
  - Tinnitus [Not Recovered/Not Resolved]

NARRATIVE: CASE EVENT DATE: 2015
